FAERS Safety Report 4899004-4 (Version None)
Quarter: 2006Q1

REPORT INFORMATION
  Report Type: 
  Country: None (occurrence: None)
  Receive Date: 20060202
  Receipt Date: 20050922
  Transmission Date: 20060701
  Serious: Yes (Hospitalization)
  Sender: FDA-Public Use
  Company Number: US-MERCK-0509USA03467

PATIENT
  Age: 74 Year
  Sex: Female
  Weight: 91 kg

DRUGS (4)
  1. VIOXX [Suspect]
     Indication: OSTEOARTHRITIS
     Route: 048
     Dates: start: 20001124, end: 20040930
  2. VIOXX [Suspect]
     Indication: ARTHRITIS
     Route: 048
     Dates: start: 20001124, end: 20040930
  3. ASPIRIN [Concomitant]
     Route: 065
  4. TYLENOL [Concomitant]
     Indication: PAIN
     Route: 065

REACTIONS (15)
  - AORTIC ARTERIOSCLEROSIS [None]
  - BACK PAIN [None]
  - CATARACT [None]
  - CORONARY ARTERY DISEASE [None]
  - HYPERKALAEMIA [None]
  - HYPERLIPIDAEMIA [None]
  - HYPERTENSION [None]
  - HYPOTHYROIDISM [None]
  - MYOCARDIAL INFARCTION [None]
  - NAUSEA [None]
  - NERVOUSNESS [None]
  - OBESITY [None]
  - RENAL FAILURE CHRONIC [None]
  - SPINAL COLUMN STENOSIS [None]
  - VOMITING [None]
